FAERS Safety Report 4376173-6 (Version None)
Quarter: 2004Q2

REPORT INFORMATION
  Report Type: 
  Country: None (occurrence: None)
  Receive Date: 20040610
  Receipt Date: 20040610
  Transmission Date: 20050107
  Serious: Yes (Other)
  Sender: FDA-Public Use
  Company Number: None

PATIENT
  Age: 28 Year
  Sex: Female
  Weight: 56.246 kg

DRUGS (1)
  1. EVRA PATCH (ORTHO) [Suspect]
     Indication: CONTRACEPTION
     Dates: start: 20021017

REACTIONS (1)
  - PREGNANCY [None]
